FAERS Safety Report 11624723 (Version 2)
Quarter: 2015Q4

REPORT INFORMATION
  Report Type: Report from Study
  Country: US (occurrence: US)
  Receive Date: 20151013
  Receipt Date: 20151106
  Transmission Date: 20160304
  Serious: Yes (Hospitalization)
  Sender: FDA-Public Use
  Company Number: US-BIOGENIDEC-2015BI137389

PATIENT
  Age: 68 Year
  Sex: Female

DRUGS (20)
  1. FUROSEMIDE. [Concomitant]
     Active Substance: FUROSEMIDE
  2. OMNARIS [Concomitant]
     Active Substance: CICLESONIDE
  3. SIMVASTATIN. [Concomitant]
     Active Substance: SIMVASTATIN
  4. ALLOPURINOL. [Concomitant]
     Active Substance: ALLOPURINOL
  5. HUMULIN R [Concomitant]
     Active Substance: INSULIN HUMAN
  6. GABAPENTIN. [Concomitant]
     Active Substance: GABAPENTIN
  7. METOCLOPRAM [Concomitant]
     Active Substance: METOCLOPRAMIDE
  8. TECFIDERA [Suspect]
     Active Substance: DIMETHYL FUMARATE
     Indication: MULTIPLE SCLEROSIS
     Route: 048
  9. ALLOPURINOL. [Concomitant]
     Active Substance: ALLOPURINOL
  10. CEFPODOXIME [Concomitant]
     Active Substance: CEFPODOXIME
  11. FOLIC ACID. [Concomitant]
     Active Substance: FOLIC ACID
  12. ROPINIROLE. [Concomitant]
     Active Substance: ROPINIROLE
  13. TECFIDERA [Suspect]
     Active Substance: DIMETHYL FUMARATE
     Indication: MULTIPLE SCLEROSIS
     Route: 048
     Dates: start: 20150901
  14. PRIMIDONE. [Concomitant]
     Active Substance: PRIMIDONE
  15. DULOXETINE. [Concomitant]
     Active Substance: DULOXETINE
  16. DULOXETINE. [Concomitant]
     Active Substance: DULOXETINE
  17. TRAZODONE [Concomitant]
     Active Substance: TRAZODONE HYDROCHLORIDE
  18. CEPHALEXIN. [Concomitant]
     Active Substance: CEPHALEXIN
  19. HYDROCO/APAP [Concomitant]
     Active Substance: ACETAMINOPHEN\HYDROCODONE
  20. LEVOTHYROXIN [Concomitant]
     Active Substance: LEVOTHYROXINE

REACTIONS (1)
  - Upper gastrointestinal haemorrhage [Recovered/Resolved]

NARRATIVE: CASE EVENT DATE: 20151005
